FAERS Safety Report 4789558-0 (Version None)
Quarter: 2005Q4

REPORT INFORMATION
  Report Type: 
  Country: None (occurrence: None)
  Receive Date: 20051006
  Receipt Date: 20050926
  Transmission Date: 20060501
  Serious: Yes (Other)
  Sender: FDA-Public Use
  Company Number: US-JNJFOC-20050405705

PATIENT
  Sex: Male
  Weight: 103.19 kg

DRUGS (4)
  1. REMICADE [Suspect]
     Route: 042
  2. REMICADE [Suspect]
     Indication: RHEUMATOID ARTHRITIS
     Dosage: 100 MG
     Route: 042
  3. CELEBREX [Concomitant]
  4. ARAVA [Concomitant]

REACTIONS (8)
  - ANAPHYLACTIC REACTION [None]
  - BLOOD PRESSURE DECREASED [None]
  - DEPRESSED LEVEL OF CONSCIOUSNESS [None]
  - INCOHERENT [None]
  - LOSS OF CONSCIOUSNESS [None]
  - SYNOVITIS [None]
  - URTICARIA [None]
  - VISION BLURRED [None]
